FAERS Safety Report 5840637-6 (Version None)
Quarter: 2008Q3

REPORT INFORMATION
  Report Type: 
  Country: None (occurrence: None)
  Receive Date: 20080811
  Receipt Date: 20080730
  Transmission Date: 20090109
  Serious: Yes (Other)
  Sender: FDA-Public Use
  Company Number: PHHY2008DK16538

PATIENT
  Sex: Male

DRUGS (2)
  1. RITALIN TAB [Suspect]
     Dosage: 1 CAPSULE 6 TIMES DAILY, DISSOLVED
     Route: 042
  2. RITALIN TAB [Suspect]
     Dosage: 1 DF, DAILY
     Route: 048

REACTIONS (3)
  - INCORRECT DOSE ADMINISTERED [None]
  - INCORRECT ROUTE OF DRUG ADMINISTRATION [None]
  - INTENTIONAL DRUG MISUSE [None]
